FAERS Safety Report 26118895 (Version 1)
Quarter: 2025Q4

REPORT INFORMATION
  Report Type: Spontaneous
  Country: CN (occurrence: CN)
  Receive Date: 20251204
  Receipt Date: 20251204
  Transmission Date: 20260118
  Serious: Yes (Hospitalization)
  Sender: BEIGENE
  Company Number: CN-BEONEMEDICINES-BGN-2025-021152

PATIENT
  Age: 82 Year
  Sex: Male

DRUGS (8)
  1. TISLELIZUMAB [Suspect]
     Active Substance: TISLELIZUMAB
     Indication: Chemotherapy
     Dosage: 200 MILLIGRAM, Q3WK
     Dates: start: 20250304, end: 20250304
  2. TISLELIZUMAB [Suspect]
     Active Substance: TISLELIZUMAB
     Indication: Lung neoplasm
     Dosage: 200 MILLIGRAM, Q3WK
     Route: 041
     Dates: start: 20250304, end: 20250304
  3. TISLELIZUMAB [Suspect]
     Active Substance: TISLELIZUMAB
     Dosage: 200 MILLIGRAM, Q3WK
     Route: 041
     Dates: start: 20250304, end: 20250304
  4. TISLELIZUMAB [Suspect]
     Active Substance: TISLELIZUMAB
     Dosage: 200 MILLIGRAM, Q3WK
     Dates: start: 20250304, end: 20250304
  5. NEDAPLATIN [Suspect]
     Active Substance: NEDAPLATIN
     Indication: Chemotherapy
     Dosage: 100 MILLIGRAM, Q4WK
     Route: 041
     Dates: start: 20250306, end: 20250306
  6. NEDAPLATIN [Suspect]
     Active Substance: NEDAPLATIN
     Indication: Lung neoplasm
     Dosage: 100 MILLIGRAM, Q4WK
     Dates: start: 20250306, end: 20250306
  7. PACLITAXEL [Suspect]
     Active Substance: PACLITAXEL
     Indication: Chemotherapy
     Dosage: 300 MILLIGRAM, Q3WK
     Route: 041
     Dates: start: 20250306, end: 20250306
  8. PACLITAXEL [Suspect]
     Active Substance: PACLITAXEL
     Indication: Lung neoplasm
     Dosage: 300 MILLIGRAM, Q3WK
     Dates: start: 20250306, end: 20250306

REACTIONS (1)
  - Myelosuppression [Recovering/Resolving]

NARRATIVE: CASE EVENT DATE: 20250313
